FAERS Safety Report 7017308-6 (Version None)
Quarter: 2010Q3

REPORT INFORMATION
  Report Type: 
  Country: None (occurrence: None)
  Receive Date: 20100928
  Receipt Date: 20100917
  Transmission Date: 20110219
  Serious: No
  Sender: FDA-Public Use
  Company Number: US-BIOGENIDEC-2010BI032269

PATIENT
  Age: 44 Year
  Sex: Female

DRUGS (5)
  1. AVONEX [Suspect]
     Indication: MULTIPLE SCLEROSIS
     Route: 030
     Dates: start: 20030101
  2. AVONEX [Suspect]
     Route: 030
     Dates: start: 19990701, end: 20030101
  3. BUSPIRONE HCL [Concomitant]
     Indication: DEPRESSION
     Route: 048
     Dates: start: 20080101
  4. LAMOTRIGINE [Concomitant]
     Indication: DEPRESSION
     Route: 048
     Dates: start: 20080101
  5. CONAZEPAM [Concomitant]
     Indication: SLEEP DISORDER
     Route: 048

REACTIONS (5)
  - ANXIETY [None]
  - GENERAL SYMPTOM [None]
  - PANIC ATTACK [None]
  - SLEEP DISORDER [None]
  - TREMOR [None]
